FAERS Safety Report 5989574-7 (Version None)
Quarter: 2008Q4

REPORT INFORMATION
  Report Type: 
  Country: None (occurrence: None)
  Receive Date: 20081208
  Receipt Date: 20081124
  Transmission Date: 20090506
  Serious: Yes (Hospitalization)
  Sender: FDA-Public Use
  Company Number: 2008S1019825

PATIENT
  Age: 3 Year
  Sex: Male

DRUGS (10)
  1. IPRATROPIUM BROMIDE [Suspect]
     Indication: ASTHMA
     Dosage: 0.5 MG; X1; INHALATION
     Route: 055
     Dates: start: 20080923, end: 20080923
  2. IPRATROPIUM BROMIDE [Suspect]
     Indication: DYSPNOEA
     Dosage: 0.5 MG; X1; INHALATION
     Route: 055
     Dates: start: 20080923, end: 20080923
  3. ALBUTEROL SULFATE [Suspect]
     Indication: DYSPNOEA
     Dosage: 2.5 MG; X1; INHALATION
     Route: 055
     Dates: start: 20080923, end: 20080923
  4. SOLU-MEDROL [Suspect]
     Dosage: 30 MG; X1
     Dates: start: 20080923, end: 20080923
  5. BENADRYL [Suspect]
     Dosage: 12.5 MG; X1
     Dates: start: 20080923, end: 20080923
  6. EPINEPHRINE [Suspect]
     Dosage: X1
     Dates: start: 20080923, end: 20080923
  7. PREDNISONE TAB [Suspect]
     Dosage: ORAL
     Route: 048
     Dates: start: 20080923
  8. XOPENEX [Concomitant]
  9. PULMICORT-100 [Concomitant]
  10. CHILDREN VITAMIN [Concomitant]

REACTIONS (8)
  - ANAPHYLACTIC SHOCK [None]
  - CRYING [None]
  - ERYTHEMA [None]
  - HEART RATE INCREASED [None]
  - NO THERAPEUTIC RESPONSE [None]
  - OXYGEN SATURATION DECREASED [None]
  - SCREAMING [None]
  - SKIN DISCOLOURATION [None]
